FAERS Safety Report 4527489-1 (Version None)
Quarter: 2004Q4

REPORT INFORMATION
  Report Type: 
  Country: None (occurrence: None)
  Receive Date: 20041215
  Receipt Date: 20041203
  Transmission Date: 20050328
  Serious: Yes (Other)
  Sender: FDA-Public Use
  Company Number: JP-BRISTOL-MYERS SQUIBB COMPANY-12789491

PATIENT
  Age: 43 Year
  Sex: Female

DRUGS (2)
  1. FUNGIZONE [Suspect]
     Indication: SYSTEMIC MYCOSIS
     Dosage: 10 MG PER DAY 15- TO 16-NOV-2004, THEN DOSAGE INCREASED TO 20 MG FROM 17- TO 24-NOV-2004
     Route: 041
     Dates: start: 20041115, end: 20041124
  2. FLUCONAZOLE [Concomitant]
     Dates: start: 20040101

REACTIONS (3)
  - BLOOD CREATINE PHOSPHOKINASE INCREASED [None]
  - CARDIAC FAILURE [None]
  - PLEURAL EFFUSION [None]
